FAERS Safety Report 19255016 (Version 1)
Quarter: 2021Q2

REPORT INFORMATION
  Report Type: Spontaneous
  Country: FR (occurrence: FR)
  Receive Date: 20210513
  Receipt Date: 20210513
  Transmission Date: 20210717
  Serious: Yes (Hospitalization)
  Sender: FDA-Public Use
  Company Number: FR-PFIZER INC-2021490162

PATIENT
  Age: 83 Year
  Sex: Male
  Weight: 72 kg

DRUGS (18)
  1. MAGNESIUM [Concomitant]
     Active Substance: MAGNESIUM
  2. LASILIX [FUROSEMIDE] [Concomitant]
     Active Substance: FUROSEMIDE
  3. UVEDOSE [Suspect]
     Active Substance: CHOLECALCIFEROL
     Dosage: 1 DF, 1X/DAY
     Route: 048
     Dates: end: 20171113
  4. CALCIDIA [Suspect]
     Active Substance: CALCIUM CARBONATE
     Dosage: 1 DF, 1X/DAY
     Route: 048
     Dates: end: 20171113
  5. MYFORTIC [Concomitant]
     Active Substance: MYCOPHENOLATE SODIUM
  6. ORACILLINE [PHENOXYMETHYLPENICILLIN BENZATHINE] [Concomitant]
     Active Substance: PENICILLIN V BENZATHINE
  7. IPERTEN [Concomitant]
     Active Substance: MANIDIPINE
  8. NOVOMIX [Concomitant]
     Active Substance: INSULIN ASPART
  9. CORDARONE [Concomitant]
     Active Substance: AMIODARONE HYDROCHLORIDE
  10. KAYEXALATE [Concomitant]
     Active Substance: SODIUM POLYSTYRENE SULFONATE
  11. ARANESP [Concomitant]
     Active Substance: DARBEPOETIN ALFA
  12. NOVORAPID [Concomitant]
     Active Substance: INSULIN ASPART
  13. LYRICA [Suspect]
     Active Substance: PREGABALIN
     Indication: DIABETIC NEUROPATHY
     Dosage: UNK
     Dates: end: 20171113
  14. OGASTORO [Concomitant]
     Active Substance: LANSOPRAZOLE
  15. TRIATEC [CAFFEINE CITRATE;CODEINE PHOSPHATE;PARACETAMOL] [Concomitant]
  16. DELURSAN [Concomitant]
     Active Substance: URSODIOL
  17. ALFA [GLYCOLIC ACID;TOCOPHERYL ACETATE] (COSMETIC) [Suspect]
     Active Substance: COSMETICS
     Dosage: 0.75 UG, 1X/DAY
     Route: 048
     Dates: end: 20171113
  18. TARDYFERON [Concomitant]
     Active Substance: FERROUS SULFATE

REACTIONS (1)
  - Hypercalcaemia [Recovered/Resolved]

NARRATIVE: CASE EVENT DATE: 20171110
